FAERS Safety Report 5667169-2 (Version None)
Quarter: 2008Q1

REPORT INFORMATION
  Report Type: 
  Country: None (occurrence: None)
  Receive Date: 20080315
  Receipt Date: 20080115
  Transmission Date: 20080703
  Serious: No
  Sender: FDA-Public Use
  Company Number: US-ABBOTT-08P-163-0433628-00

PATIENT
  Sex: Female

DRUGS (9)
  1. HUMIRA [Suspect]
     Indication: CROHN'S DISEASE
     Route: 058
     Dates: start: 20071214, end: 20071214
  2. HUMIRA [Suspect]
     Route: 058
     Dates: start: 20071229, end: 20071229
  3. HUMIRA [Suspect]
     Route: 058
     Dates: end: 20080111
  4. PAROXETINE HCL [Concomitant]
     Indication: DEPRESSION
     Route: 058
  5. LOMOTIL [Concomitant]
     Indication: DIARRHOEA
     Route: 048
  6. OXYCODONE HCL [Concomitant]
     Indication: ABDOMINAL PAIN
     Route: 048
  7. OXYCODONE HCL [Concomitant]
     Indication: PAIN
  8. OXYCODONE HCL [Concomitant]
     Indication: INTERVERTEBRAL DISC PROTRUSION
  9. CYANOCOBALAMIN [Concomitant]
     Indication: VITAMIN SUPPLEMENTATION
     Route: 030

REACTIONS (3)
  - HEADACHE [None]
  - PYREXIA [None]
  - SINUSITIS [None]
